FAERS Safety Report 7078442-8 (Version None)
Quarter: 2010Q4

REPORT INFORMATION
  Report Type: 
  Country: None (occurrence: None)
  Receive Date: 20101101
  Receipt Date: 20101101
  Transmission Date: 20110411
  Serious: Yes (Other)
  Sender: FDA-Public Use
  Company Number: None

PATIENT
  Sex: Female

DRUGS (1)
  1. 3D WHITE ADVANCED FLUORIDE ANTI-CAVITY PASTE PROCTOR + GAMBLE [Suspect]
     Dosage: 1-2 TIMES A DAY PO
     Route: 048
     Dates: start: 20100808, end: 20100908

REACTIONS (3)
  - DYSGEUSIA [None]
  - SENSITIVITY OF TEETH [None]
  - TOOTH DISORDER [None]
